FAERS Safety Report 4623444-1 (Version None)
Quarter: 2005Q1

REPORT INFORMATION
  Report Type: 
  Country: None (occurrence: None)
  Receive Date: 20050330
  Receipt Date: 20050316
  Transmission Date: 20050727
  Serious: Yes (Hospitalization)
  Sender: FDA-Public Use
  Company Number: 2005045844

PATIENT
  Age: 77 Year
  Sex: Male

DRUGS (10)
  1. ATARAX [Suspect]
     Indication: ILL-DEFINED DISORDER
     Dosage: 300 MG (100 MG, 3 IN 1 D), ORAL
     Route: 048
     Dates: end: 20050216
  2. ZOLPIDEM TARTRATE [Suspect]
     Indication: ILL-DEFINED DISORDER
     Dosage: 10 MG (1 IN 1 D), ORAL
     Route: 048
     Dates: end: 20050216
  3. ALENDRONATE SODIUM [Suspect]
     Indication: ILL-DEFINED DISORDER
     Dosage: 70 MG (1 IN 1 D), ORAL
     Route: 048
     Dates: start: 20050122, end: 20050131
  4. PYRIDOXINE HCL [Concomitant]
  5. ALFUZOSIN (ALFUZOSIN) [Concomitant]
  6. ACETYLSALICYLIC ACID SRT [Concomitant]
  7. ALLOPURINOL [Concomitant]
  8. OMEPRAZOLE [Concomitant]
  9. NICERGOLINE (NICERGOLINE) [Concomitant]
  10. LERCANIDIPINE [Concomitant]

REACTIONS (3)
  - AGITATION [None]
  - CONFUSIONAL STATE [None]
  - MEDICATION ERROR [None]
